FAERS Safety Report 6252672-7 (Version None)
Quarter: 2009Q3

REPORT INFORMATION
  Report Type: 
  Country: None (occurrence: None)
  Receive Date: 20090701
  Receipt Date: 20090619
  Transmission Date: 20100115
  Serious: Yes (Hospitalization, Other)
  Sender: FDA-Public Use
  Company Number: PHHY2009JP10866

PATIENT
  Sex: Male

DRUGS (2)
  1. TEGRETOL [Suspect]
     Indication: EPILEPSY
     Dosage: UNK
     Route: 048
  2. HYDANTOL [Concomitant]
     Dosage: UNK

REACTIONS (3)
  - GLOMERULONEPHRITIS MEMBRANOUS [None]
  - PROTEINURIA [None]
  - SWELLING [None]
